FAERS Safety Report 8744226 (Version 2)
Quarter: 2012Q4

REPORT INFORMATION
  Report Type: 
  Country: GB (occurrence: GB)
  Receive Date: 20120824
  Receipt Date: 20120917
  Transmission Date: 20130627
  Serious: Yes (Other)
  Sender: FDA-Public Use
  Company Number: GB-009507513-1208GBR008950

PATIENT

DRUGS (6)
  1. ZOCOR [Suspect]
     Dosage: UNK
     Route: 048
     Dates: start: 20120310
  2. AMLODIPINE [Suspect]
  3. ASPIRIN [Suspect]
     Dosage: 75 mg, UNK
  4. ATORVASTATIN [Suspect]
     Dosage: UNK
     Route: 048
     Dates: start: 20120710, end: 20120731
  5. DIPYRIDAMOLE [Suspect]
  6. PERINDOPRIL [Suspect]

REACTIONS (4)
  - Renal disorder [Recovered/Resolved]
  - Quality of life decreased [Unknown]
  - Myalgia [Unknown]
  - Abdominal pain [Unknown]
